FAERS Safety Report 4960604-4 (Version None)
Quarter: 2006Q2

REPORT INFORMATION
  Report Type: 
  Country: None (occurrence: None)
  Receive Date: 20060403
  Receipt Date: 20050517
  Transmission Date: 20061013
  Serious: Yes (Hospitalization, Disabling)
  Sender: FDA-Public Use
  Company Number: US-MERCK-0505USA02263

PATIENT
  Age: 47 Year
  Sex: Female
  Weight: 76 kg

DRUGS (2)
  1. VIOXX [Suspect]
     Indication: ARTHRITIS
     Route: 048
     Dates: start: 20011201, end: 20041001
  2. PROZAC [Suspect]
     Route: 065

REACTIONS (23)
  - ANAEMIA [None]
  - ANXIETY [None]
  - BACK PAIN [None]
  - CONVULSION [None]
  - CORONARY ARTERY DISEASE [None]
  - CRYING [None]
  - DEPRESSION [None]
  - FALL [None]
  - FIBROMYALGIA [None]
  - HYPERTENSION [None]
  - HYPOAESTHESIA [None]
  - INSOMNIA [None]
  - IRRITABILITY [None]
  - MIGRAINE [None]
  - MUSCLE SPASMS [None]
  - MYALGIA [None]
  - MYOCARDIAL INFARCTION [None]
  - NERVE COMPRESSION [None]
  - NIGHTMARE [None]
  - SLEEP APNOEA SYNDROME [None]
  - STRESS INCONTINENCE [None]
  - VAGINAL PROLAPSE [None]
  - VISUAL DISTURBANCE [None]
